FAERS Safety Report 24737500 (Version 1)
Quarter: 2024Q4

REPORT INFORMATION
  Report Type: Spontaneous
  Country: RU (occurrence: RU)
  Receive Date: 20241216
  Receipt Date: 20241216
  Transmission Date: 20250114
  Serious: Yes (Other)
  Sender: ACCORD
  Company Number: RU-MLMSERVICE-20241202-PI272173-00128-6

PATIENT
  Age: 35 Year
  Sex: Female

DRUGS (8)
  1. CARBOPLATIN [Suspect]
     Active Substance: CARBOPLATIN
     Indication: Triple negative breast cancer
     Dosage: AT A DOSE OF AUC 6 ON DAY 1
  2. PACLITAXEL [Suspect]
     Active Substance: PACLITAXEL
     Indication: Triple negative breast cancer
     Dosage: ON DAYS 1, 8, AND 15 (21-DAY CYCLE)
  3. DOXORUBICIN [Suspect]
     Active Substance: DOXORUBICIN
     Indication: Invasive ductal breast carcinoma
     Dosage: ON THE DAY 1 OF THE TREATMENT CYCLE AND THE TREATMENT CYCLE WAS 14 DAYS
  4. CYCLOPHOSPHAMIDE [Suspect]
     Active Substance: CYCLOPHOSPHAMIDE
     Indication: Invasive ductal breast carcinoma
     Dosage: THE TREATMENT CYCLE WAS 14 DAYS, AND MEDICATION RECEIVED N DAY 1 OF THE CYCLE.
  5. PACLITAXEL [Suspect]
     Active Substance: PACLITAXEL
     Indication: Triple negative breast cancer
     Dosage: ON DAYS 1, 8, AND 15 (21-DAY CYCLE)
  6. CARBOPLATIN [Suspect]
     Active Substance: CARBOPLATIN
     Indication: Invasive ductal breast carcinoma
     Dosage: AT A DOSE OF AUC 6 ON DAY 1
  7. DOXORUBICIN [Suspect]
     Active Substance: DOXORUBICIN
     Indication: Triple negative breast cancer
     Dosage: ON THE DAY 1 OF THE TREATMENT CYCLE AND THE TREATMENT CYCLE WAS 14 DAYS
  8. CYCLOPHOSPHAMIDE [Suspect]
     Active Substance: CYCLOPHOSPHAMIDE
     Indication: Triple negative breast cancer
     Dosage: THE TREATMENT CYCLE WAS 14 DAYS, AND MEDICATION RECEIVED N DAY 1 OF THE CYCLE.

REACTIONS (7)
  - Hepatic function abnormal [Unknown]
  - Iron deficiency anaemia [Unknown]
  - Tonsillitis [Unknown]
  - Condition aggravated [Unknown]
  - Urinary tract infection [Unknown]
  - Herpes zoster [Unknown]
  - Pharyngitis [Unknown]
